FAERS Safety Report 10570158 (Version 1)
Quarter: 2014Q4

REPORT INFORMATION
  Report Type: Spontaneous
  Country: US (occurrence: None)
  Receive Date: 20141106
  Receipt Date: 20141106
  Transmission Date: 20150529
  Serious: Yes (Life-Threatening, Hospitalization)
  Sender: FDA-Public Use
  Company Number: None

PATIENT
  Age: 48 Year
  Sex: Male
  Weight: 72.58 kg

DRUGS (1)
  1. URIBEL [Suspect]
     Active Substance: HYOSCYAMINE SULFATE\METHENAMINE\METHYLENE BLUE\PHENYL SALICYLATE\SODIUM PHOSPHATE, MONOBASIC, MONOHYDRATE
     Indication: DYSURIA
     Dosage: 1 PILL
     Dates: start: 20141103, end: 20141103

REACTIONS (10)
  - Photophobia [None]
  - Headache [None]
  - Balance disorder [None]
  - Inflammation [None]
  - Muscular weakness [None]
  - Feeling abnormal [None]
  - Dizziness [None]
  - Nausea [None]
  - Oesophageal disorder [None]
  - Movement disorder [None]

NARRATIVE: CASE EVENT DATE: 20141103
